FAERS Safety Report 5861384-0 (Version None)
Quarter: 2008Q3

REPORT INFORMATION
  Report Type: 
  Country: None (occurrence: None)
  Receive Date: 20080827
  Receipt Date: 20080512
  Transmission Date: 20090109
  Serious: No
  Sender: FDA-Public Use
  Company Number: US-ABBOTT-08P-163-0451288-00

PATIENT
  Sex: Male
  Weight: 96.248 kg

DRUGS (5)
  1. COATED PDS [Suspect]
     Indication: BLOOD CHOLESTEROL INCREASED
     Dosage: 500 MG EVERY NIGHT
     Route: 048
     Dates: start: 20080424, end: 20080508
  2. COATED PDS [Suspect]
     Dates: start: 20080512, end: 20080514
  3. TRAZODONE HCL [Concomitant]
     Indication: INSOMNIA
     Dosage: 1/2 PILL EVERY NIGHT
     Route: 048
     Dates: start: 20080402
  4. GABAPENTIN [Concomitant]
     Indication: PAIN
     Route: 048
     Dates: start: 20080402
  5. METOPROLOL TARTRATE [Concomitant]
     Indication: BLOOD PRESSURE MANAGEMENT
     Dosage: 25 MG, 1/2 IN MORNING AND 1/2 AT NIGHT
     Route: 048
     Dates: start: 20050101

REACTIONS (1)
  - MUSCLE SPASMS [None]
